FAERS Safety Report 4357412-4 (Version None)
Quarter: 2004Q2

REPORT INFORMATION
  Report Type: 
  Country: None (occurrence: None)
  Receive Date: 20040510
  Receipt Date: 20040423
  Transmission Date: 20050107
  Serious: Yes (Hospitalization)
  Sender: FDA-Public Use
  Company Number: 2001AP02599

PATIENT
  Age: 52 Year
  Sex: Female

DRUGS (3)
  1. ARIMIDEX [Suspect]
     Indication: BREAST CANCER
     Dosage: 1 MGDAILY PO
     Route: 048
     Dates: start: 19980528, end: 20030827
  2. CIPRAMIL [Concomitant]
  3. CO-DYDRAMOL [Concomitant]

REACTIONS (1)
  - ERYTHROMELALGIA [None]
